FAERS Safety Report 4760570-0 (Version None)
Quarter: 2005Q3

REPORT INFORMATION
  Report Type: 
  Country: None (occurrence: None)
  Receive Date: 20050826
  Receipt Date: 20050224
  Transmission Date: 20060218
  Serious: Yes (Death)
  Sender: FDA-Public Use
  Company Number: USA-2005-0019069

PATIENT
  Age: 29 Year
  Sex: Male

DRUGS (5)
  1. OXYCODONE HCL [Suspect]
  2. ETHANOL (ETHANOL) [Suspect]
  3. DIPHENHYDRAMINE HCL [Suspect]
  4. DIAZEPAM [Suspect]
  5. OXYMORPHONE HYDROCHLORIDE [Suspect]

REACTIONS (2)
  - ACCIDENTAL OVERDOSE [None]
  - MULTIPLE DRUG OVERDOSE [None]
